FAERS Safety Report 20866404 (Version 1)
Quarter: 2022Q2

REPORT INFORMATION
  Report Type: Spontaneous
  Country: US (occurrence: US)
  Receive Date: 20220524
  Receipt Date: 20220524
  Transmission Date: 20220721
  Serious: No
  Sender: FDA-Public Use
  Company Number: US-BAYER-2022A072065

PATIENT
  Age: 40 Year
  Sex: Female

DRUGS (1)
  1. ACARBOSE [Suspect]
     Active Substance: ACARBOSE

REACTIONS (1)
  - Drug ineffective [None]
